FAERS Safety Report 5869409-3 (Version None)
Quarter: 2008Q3

REPORT INFORMATION
  Report Type: 
  Country: None (occurrence: None)
  Receive Date: 20080828
  Receipt Date: 20070913
  Transmission Date: 20090109
  Serious: Yes (Hospitalization, Other)
  Sender: FDA-Public Use
  Company Number: GXKR2007FR11063

PATIENT
  Age: 59 Year
  Sex: Male

DRUGS (5)
  1. AMOXICILLIN SODIUM+POTASSIUM CLAVULANATE SANDOZ (NGX) (AMOCILLIN, CLAV [Suspect]
     Indication: BRONCHOPNEUMONIA
     Dosage: ORAL
     Route: 048
     Dates: start: 20070220
  2. PROPRANOLOL [Concomitant]
  3. INIPOMP (PANTOPRAZOLE) [Concomitant]
  4. LEXOMIL (BROMAZEPAM) [Concomitant]
  5. METEOSPASMYL (ALVERINE CITRATE, DL-METHIONINE) [Concomitant]

REACTIONS (12)
  - ANAEMIA [None]
  - ASTHENIA [None]
  - COLON ADENOMA [None]
  - DYSPLASIA [None]
  - DYSPNOEA [None]
  - GASTROINTESTINAL HAEMORRHAGE [None]
  - HAEMORRHOIDS [None]
  - HEPATIC STEATOSIS [None]
  - MYALGIA [None]
  - PAPILLOMA [None]
  - RECTAL HAEMORRHAGE [None]
  - VARICES OESOPHAGEAL [None]
